FAERS Safety Report 21109827 (Version 1)
Quarter: 2022Q3

REPORT INFORMATION
  Report Type: Spontaneous
  Country: FR (occurrence: FR)
  Receive Date: 20220721
  Receipt Date: 20220721
  Transmission Date: 20221027
  Serious: No
  Sender: FDA-Public Use
  Company Number: FR-ORGANON-O2207FRA001581

PATIENT
  Sex: Female

DRUGS (1)
  1. NEXPLANON [Suspect]
     Active Substance: ETONOGESTREL
     Dosage: 1 IMPLANT
     Route: 058
     Dates: start: 20220711, end: 20220711

REACTIONS (2)
  - Complication of device insertion [Not Recovered/Not Resolved]
  - Product quality issue [Unknown]
